FAERS Safety Report 15636487 (Version 1)
Quarter: 2018Q4

REPORT INFORMATION
  Report Type: Spontaneous
  Country: RU (occurrence: RU)
  Receive Date: 20181120
  Receipt Date: 20181120
  Transmission Date: 20190205
  Serious: Yes (Hospitalization, Other)
  Sender: FDA-Public Use
  Company Number: RU-ABBVIE-18K-251-2559618-00

PATIENT
  Age: 45 Year
  Sex: Female
  Weight: 73 kg

DRUGS (5)
  1. VENETOCLAX. [Suspect]
     Active Substance: VENETOCLAX
     Indication: DIFFUSE LARGE B-CELL LYMPHOMA
     Route: 048
     Dates: start: 20181106, end: 20181112
  2. HEPTOR [Concomitant]
     Indication: HEPATOBILLIARY DISORDER PROPHYLAXIS
     Route: 042
     Dates: start: 20181106
  3. GORDOX [Concomitant]
     Indication: PROPHYLAXIS
     Route: 042
     Dates: start: 20181112
  4. VENETOCLAX. [Suspect]
     Active Substance: VENETOCLAX
     Route: 048
     Dates: start: 20181113, end: 20181113
  5. HUMAN ALBUMIN [Concomitant]
     Active Substance: ALBUMIN HUMAN
     Indication: HYPOALBUMINAEMIA
     Route: 042
     Dates: start: 20181108

REACTIONS (6)
  - Neutropenia [Not Recovered/Not Resolved]
  - Blood lactate dehydrogenase increased [Unknown]
  - Blood albumin decreased [Unknown]
  - Protein total decreased [Unknown]
  - Blood urea increased [Unknown]
  - Hyperthermia [Not Recovered/Not Resolved]

NARRATIVE: CASE EVENT DATE: 20181106
